FAERS Safety Report 8886928 (Version 2)
Quarter: 2012Q4

REPORT INFORMATION
  Report Type: 
  Country: US (occurrence: US)
  Receive Date: 20121105
  Receipt Date: 20121123
  Transmission Date: 20130627
  Serious: Yes (Other)
  Sender: FDA-Public Use
  Company Number: US-PFIZER INC-2012274981

PATIENT
  Age: 85 Year
  Sex: Female
  Weight: 58.5 kg

DRUGS (2)
  1. NORVASC [Suspect]
     Indication: BLOOD PRESSURE ABNORMAL
     Dosage: 5 mg, 2x/day
     Route: 048
  2. ZOLPIDEM [Concomitant]
     Indication: SLEEP PROBLEM
     Dosage: 10 mg, daily

REACTIONS (1)
  - Breast cancer female [Not Recovered/Not Resolved]
